FAERS Safety Report 12591452 (Version 1)
Quarter: 2016Q3

REPORT INFORMATION
  Report Type: Report from Study
  Country: US (occurrence: US)
  Receive Date: 20160726
  Receipt Date: 20160726
  Transmission Date: 20161109
  Serious: Yes (Hospitalization)
  Sender: FDA-Public Use
  Company Number: US-UCBSA-2016027951

PATIENT
  Age: 29 Year
  Sex: Male
  Weight: 64 kg

DRUGS (2)
  1. CERTOLIZUMAB PEGOL CD [Suspect]
     Active Substance: CERTOLIZUMAB PEGOL
     Dosage: 200 MG, UNK
     Dates: start: 20101223
  2. CERTOLIZUMAB PEGOL CD [Suspect]
     Active Substance: CERTOLIZUMAB PEGOL
     Indication: CROHN^S DISEASE
     Dosage: 400 MG, UNK
     Dates: start: 20100804, end: 20101209

REACTIONS (1)
  - Stoma site abscess [Recovered/Resolved]

NARRATIVE: CASE EVENT DATE: 201502
